FAERS Safety Report 5465573-9 (Version None)
Quarter: 2007Q3

REPORT INFORMATION
  Report Type: 
  Country: None (occurrence: None)
  Receive Date: 20070924
  Receipt Date: 19940923
  Transmission Date: 20080115
  Serious: Yes (Other)
  Sender: FDA-Public Use
  Company Number: FR-PFIZER INC-2006121761

PATIENT
  Sex: Male

DRUGS (5)
  1. IRINOTECAN HCL [Suspect]
     Indication: RESPIRATORY TRACT CARCINOMA IN SITU
     Dosage: DAILY DOSE:550MG
     Route: 042
     Dates: start: 19940718, end: 19940718
  2. IRINOTECAN HCL [Suspect]
     Dosage: DAILY DOSE:550MG
     Route: 042
     Dates: start: 19940829, end: 19940829
  3. ACETAMINOPHEN [Concomitant]
  4. DEXTROMORAMIDE [Concomitant]
  5. ZOLPIDEM TARTRATE [Concomitant]

REACTIONS (1)
  - HALLUCINATION [None]
